FAERS Safety Report 25715459 (Version 1)
Quarter: 2025Q3

REPORT INFORMATION
  Report Type: Spontaneous
  Country: US (occurrence: None)
  Receive Date: 20250821
  Receipt Date: 20250821
  Transmission Date: 20251021
  Serious: Yes (Hospitalization)
  Sender: FDA-CTU
  Company Number: None

PATIENT
  Sex: Female

DRUGS (4)
  1. SPRAVATO [Suspect]
     Active Substance: ESKETAMINE
     Indication: Bipolar disorder
     Route: 045
     Dates: start: 20240702
  2. SPRAVATO [Suspect]
     Active Substance: ESKETAMINE
     Indication: Major depression
  3. SPRAVATO [Suspect]
     Active Substance: ESKETAMINE
     Indication: Generalised anxiety disorder
  4. SPRAVATO [Suspect]
     Active Substance: ESKETAMINE
     Indication: Anxiety disorder

REACTIONS (1)
  - Major depression [None]
